FAERS Safety Report 8436880-2 (Version None)
Quarter: 2012Q2

REPORT INFORMATION
  Report Type: 
  Country: None (occurrence: None)
  Receive Date: 20120614
  Receipt Date: 20120611
  Transmission Date: 20120825
  Serious: Yes (Death)
  Sender: FDA-Public Use
  Company Number: GR-ABBOTT-12P-066-0944584-00

PATIENT
  Age: 78 Year
  Sex: Male
  Weight: 64 kg

DRUGS (3)
  1. ZEMPLAR [Suspect]
     Indication: HYPERPARATHYROIDISM SECONDARY
     Route: 042
     Dates: start: 20090901, end: 20120608
  2. ERYTHROPOETIN [Concomitant]
     Indication: RENAL FAILURE CHRONIC
     Route: 042
     Dates: start: 20040101, end: 20120101
  3. LANTUS [Concomitant]
     Indication: DIABETES MELLITUS
     Route: 058
     Dates: start: 20000101, end: 20120101

REACTIONS (3)
  - SHOCK [None]
  - CARDIAC ARREST [None]
  - CARDIAC FAILURE CONGESTIVE [None]
